FAERS Safety Report 6004444-6 (Version None)
Quarter: 2008Q4

REPORT INFORMATION
  Report Type: 
  Country: None (occurrence: None)
  Receive Date: 20081216
  Receipt Date: 20081212
  Transmission Date: 20090506
  Serious: Yes (Hospitalization)
  Sender: FDA-Public Use
  Company Number: CH-MERCK-0812CHE00013

PATIENT
  Age: 78 Year
  Sex: Female

DRUGS (4)
  1. INVANZ [Suspect]
     Route: 065
     Dates: end: 20080526
  2. FLAGYL [Suspect]
     Route: 048
     Dates: start: 20080329
  3. KONAKION [Concomitant]
     Route: 051
  4. ALDACTONE [Concomitant]
     Route: 048

REACTIONS (5)
  - DIARRHOEA [None]
  - MOTOR DYSFUNCTION [None]
  - MUSCULAR WEAKNESS [None]
  - SPEECH DISORDER [None]
  - VOMITING [None]
